FAERS Safety Report 10196221 (Version 2)
Quarter: 2014Q2

REPORT INFORMATION
  Report Type: Report from Study
  Country: CL (occurrence: CL)
  Receive Date: 20140527
  Receipt Date: 20140610
  Transmission Date: 20141212
  Serious: Yes (Death)
  Sender: FDA-Public Use
  Company Number: PHHY2014CL063943

PATIENT
  Sex: Male

DRUGS (2)
  1. GLIVEC [Suspect]
     Indication: ACUTE LYMPHOCYTIC LEUKAEMIA
     Dosage: UNK UKN, UNK
  2. GLIVEC [Suspect]
     Indication: CHROMOSOME ANALYSIS ABNORMAL
     Dosage: 600 MG, UNK
     Route: 048
     Dates: start: 20130613

REACTIONS (3)
  - Cardio-respiratory arrest [Fatal]
  - Multi-organ failure [Fatal]
  - Acute lymphocytic leukaemia [Fatal]
